FAERS Safety Report 12234357 (Version 1)
Quarter: 2016Q2

REPORT INFORMATION
  Report Type: Spontaneous
  Country: JP (occurrence: JP)
  Receive Date: 20160404
  Receipt Date: 20160404
  Transmission Date: 20160815
  Serious: Yes (Hospitalization)
  Sender: FDA-Public Use
  Company Number: JP-PFIZER INC-2016189426

PATIENT

DRUGS (1)
  1. CORTRIL [Suspect]
     Active Substance: HYDROCORTISONE
     Indication: HYPOPITUITARISM
     Dosage: 15 MG (ONE AND A HALF TABLETS) DAILY
     Route: 048

REACTIONS (1)
  - Ileus [Unknown]
